FAERS Safety Report 8075207-5 (Version None)
Quarter: 2012Q1

REPORT INFORMATION
  Report Type: 
  Country: None (occurrence: None)
  Receive Date: 20120127
  Receipt Date: 20120123
  Transmission Date: 20120608
  Serious: No
  Sender: FDA-Public Use
  Company Number: US-PFIZER INC-2012019305

PATIENT
  Sex: Male
  Weight: 94.785 kg

DRUGS (3)
  1. EMCYT [Suspect]
     Indication: PROSTATE CANCER
     Dosage: 140 MG, 3X/DAY
     Route: 048
     Dates: start: 20120103, end: 20120119
  2. SUTENT [Suspect]
     Indication: PROSTATE CANCER
     Dosage: UNK
     Route: 048
  3. PREDNISONE [Concomitant]
     Indication: CHEMOTHERAPY
     Dosage: 10 MG, DAILY

REACTIONS (2)
  - BREAST PAIN [None]
  - GROIN PAIN [None]
